FAERS Safety Report 12797964 (Version 1)
Quarter: 2016Q3

REPORT INFORMATION
  Report Type: Report from Study
  Country: US (occurrence: US)
  Receive Date: 20160930
  Receipt Date: 20160930
  Transmission Date: 20161109
  Serious: Yes (Other)
  Sender: FDA-Public Use
  Company Number: US-AMGEN-USASL2016132928

PATIENT

DRUGS (1)
  1. KYPROLIS [Suspect]
     Active Substance: CARFILZOMIB
     Indication: PRODUCT USED FOR UNKNOWN INDICATION
     Dosage: UNK
     Route: 065

REACTIONS (103)
  - Bacteraemia [Unknown]
  - Encephalomyelitis [Unknown]
  - Respiratory failure [Unknown]
  - Palliative care [Unknown]
  - Scleritis [Unknown]
  - Haemoptysis [Unknown]
  - Haematuria [Unknown]
  - Insomnia related to another mental condition [Unknown]
  - Blood test abnormal [Unknown]
  - Tachypnoea [Unknown]
  - Dehydration [Unknown]
  - Diarrhoea [Unknown]
  - Dyspnoea [Unknown]
  - Pyrexia [Unknown]
  - Hypomagnesaemia [Unknown]
  - Nausea [Unknown]
  - Urinary tract infection [Unknown]
  - Bacterial sepsis [Unknown]
  - Acute kidney injury [Unknown]
  - Acidosis [Unknown]
  - Adverse drug reaction [Unknown]
  - Dysphagia [Unknown]
  - Urine analysis abnormal [Unknown]
  - Musculoskeletal disorder [Unknown]
  - Supraventricular tachycardia [Unknown]
  - Hyperparathyroidism [Unknown]
  - Hypercalcaemia [Unknown]
  - Vomiting [Unknown]
  - Pneumonitis [Unknown]
  - Cerebral infarction [Unknown]
  - Ileus [Unknown]
  - Septic shock [Unknown]
  - Nephrogenic anaemia [Unknown]
  - End stage renal disease [Unknown]
  - Spinal osteoarthritis [Unknown]
  - Bronchitis [Unknown]
  - Abdominal pain upper [Unknown]
  - Meningitis viral [Unknown]
  - Adrenocortical insufficiency acute [Unknown]
  - Pulmonary embolism [Unknown]
  - Embolism venous [Unknown]
  - Gastrointestinal haemorrhage [Unknown]
  - Atrial fibrillation [Unknown]
  - Fluid overload [Unknown]
  - Anaemia [Unknown]
  - Cough [Unknown]
  - Fatigue [Unknown]
  - Cellulitis [Unknown]
  - Craniocerebral injury [Unknown]
  - Shock [Unknown]
  - Neutropenia [Unknown]
  - Drug abuse [Unknown]
  - Essential hypertension [Unknown]
  - Coagulopathy [Unknown]
  - Cataract subcapsular [Unknown]
  - Hypercapnia [Unknown]
  - Hypotension [Unknown]
  - Wheezing [Unknown]
  - Gangrene [Unknown]
  - Intraocular lens implant [Unknown]
  - Chronic kidney disease-mineral and bone disorder [Unknown]
  - Acid-base balance disorder mixed [Unknown]
  - Hyperkalaemia [Unknown]
  - Chest pain [Unknown]
  - Constipation [Unknown]
  - Pain in extremity [Unknown]
  - Cataract [Unknown]
  - Bronchiectasis [Unknown]
  - Paralysis [Unknown]
  - Polyneuropathy [Unknown]
  - Encephalitis [Unknown]
  - Chronic obstructive pulmonary disease [Unknown]
  - Adjustment disorder [Unknown]
  - Gastrooesophageal reflux disease [Unknown]
  - White blood cell count increased [Unknown]
  - Graft complication [Unknown]
  - Nasal disorder [Unknown]
  - Mental disorder [Unknown]
  - Osteoarthritis [Unknown]
  - Upper respiratory tract infection [Unknown]
  - Back pain [Unknown]
  - Pain [Unknown]
  - Asthenia [Unknown]
  - Chronic respiratory failure [Unknown]
  - Pulmonary infarction [Unknown]
  - Chronic kidney disease [Unknown]
  - Thrombocytopenia [Unknown]
  - Pneumonia [Unknown]
  - Sepsis [Unknown]
  - Gout [Unknown]
  - Mental status changes [Unknown]
  - Oral candidiasis [Unknown]
  - Asthma [Unknown]
  - Sleep apnoea syndrome [Unknown]
  - Bacterial infection [Unknown]
  - Sinus disorder [Unknown]
  - Ureteral disorder [Unknown]
  - Renal disorder [Unknown]
  - Soft tissue disorder [Unknown]
  - Otitis media [Unknown]
  - Peripheral vascular disorder [Unknown]
  - Borderline glaucoma [Unknown]
  - Tachycardia [Unknown]

NARRATIVE: CASE EVENT DATE: 20131127
